FAERS Safety Report 11068521 (Version 1)
Quarter: 2015Q2

REPORT INFORMATION
  Report Type: Spontaneous
  Country: US (occurrence: None)
  Receive Date: 20150424
  Receipt Date: 20150424
  Transmission Date: 20150821
  Serious: Yes (Disabling)
  Sender: FDA-Public Use
  Company Number: None

PATIENT
  Age: 56 Year
  Sex: Male
  Weight: 109.32 kg

DRUGS (12)
  1. ATORVASTATIN [Suspect]
     Active Substance: ATORVASTATIN
     Indication: BLOOD CHOLESTEROL
     Route: 048
     Dates: start: 20141209, end: 20150422
  2. JANUVIA [Concomitant]
     Active Substance: SITAGLIPTIN PHOSPHATE
  3. OMEPRAZOLE. [Concomitant]
     Active Substance: OMEPRAZOLE
  4. SPIRIVA [Concomitant]
     Active Substance: TIOTROPIUM BROMIDE MONOHYDRATE
  5. VERAMYST [Concomitant]
     Active Substance: FLUTICASONE FUROATE
  6. FLOVENT HFA [Concomitant]
     Active Substance: FLUTICASONE PROPIONATE
  7. GLIMIPIRIDE [Concomitant]
  8. VITAMIN D3 [Concomitant]
     Active Substance: CHOLECALCIFEROL
  9. RESCUE INHALER [Concomitant]
  10. LORATADINE. [Concomitant]
     Active Substance: LORATADINE
  11. LISINOPRIL AND HYDROCHLOROTHIAZIDE [Concomitant]
     Active Substance: HYDROCHLOROTHIAZIDE\LISINOPRIL
  12. LOW DOSE ASPIRIN [Concomitant]
     Active Substance: ASPIRIN

REACTIONS (18)
  - Nausea [None]
  - Joint swelling [None]
  - Vision blurred [None]
  - Tinnitus [None]
  - Dizziness [None]
  - Nightmare [None]
  - Hypoaesthesia oral [None]
  - Headache [None]
  - Abdominal pain [None]
  - Heart rate increased [None]
  - Amnesia [None]
  - Constipation [None]
  - Insomnia [None]
  - Neuropathy peripheral [None]
  - Oral pain [None]
  - Confusional state [None]
  - Epistaxis [None]
  - Arthralgia [None]

NARRATIVE: CASE EVENT DATE: 20150420
